FAERS Safety Report 15905203 (Version 1)
Quarter: 2019Q1

REPORT INFORMATION
  Report Type: Spontaneous
  Country: BR (occurrence: BR)
  Receive Date: 20190204
  Receipt Date: 20190204
  Transmission Date: 20190417
  Serious: Yes (Hospitalization, Other)
  Sender: FDA-Public Use
  Company Number: BR-GLAXOSMITHKLINE-BR2019GSK016329

PATIENT
  Age: 6 Month
  Sex: Female
  Weight: 13 kg

DRUGS (1)
  1. ZINNAT [Suspect]
     Active Substance: CEFUROXIME AXETIL
     Indication: BACTERIAL INFECTION
     Dosage: 2.5 ML, BID
     Route: 048
     Dates: start: 201810

REACTIONS (4)
  - Respiratory disorder [Unknown]
  - Near drowning [Recovered/Resolved]
  - Poor quality product administered [Recovered/Resolved]
  - Product storage error [Recovered/Resolved]

NARRATIVE: CASE EVENT DATE: 20181109
